FAERS Safety Report 7017955-1 (Version None)
Quarter: 2010Q3

REPORT INFORMATION
  Report Type: 
  Country: None (occurrence: None)
  Receive Date: 20100928
  Receipt Date: 20100917
  Transmission Date: 20110219
  Serious: Yes (Hospitalization)
  Sender: FDA-Public Use
  Company Number: JP-SANOFI-AVENTIS-2010SA051578

PATIENT
  Sex: Male

DRUGS (3)
  1. PLAVIX [Suspect]
     Indication: CAROTID ARTERY STENOSIS
     Route: 048
     Dates: start: 20090511, end: 20100618
  2. DEPAS [Concomitant]
     Indication: NEUROSIS
     Route: 048
     Dates: start: 20090615
  3. DASEN [Concomitant]
     Indication: INFLAMMATION
     Dosage: ADMINISTERED AS NEEDED FOR 5 TO 7 DAYS.
     Route: 048
     Dates: start: 20090615

REACTIONS (4)
  - BLOOD CREATINE PHOSPHOKINASE INCREASED [None]
  - OFF LABEL USE [None]
  - PYREXIA [None]
  - RHABDOMYOLYSIS [None]
